FAERS Safety Report 8548796-1 (Version None)
Quarter: 2012Q3

REPORT INFORMATION
  Report Type: 
  Country: None (occurrence: None)
  Receive Date: 20120730
  Receipt Date: 20120719
  Transmission Date: 20120928
  Serious: Yes (Hospitalization)
  Sender: FDA-Public Use
  Company Number: BR-BRISTOL-MYERS SQUIBB COMPANY-16796344

PATIENT
  Age: 69 Year
  Sex: Male
  Weight: 80 kg

DRUGS (2)
  1. CEPHALEXIN [Suspect]
  2. SPRYCEL [Suspect]
     Indication: CHRONIC MYELOID LEUKAEMIA
     Dosage: STARTED 3 YEARS AGO 1DF:2 TABLETS OF 50 MG  REDUCED TO 1 TABLET DAILY, ALSO TAKEN ON 17JUL12
     Route: 048

REACTIONS (4)
  - RED BLOOD CELL COUNT DECREASED [None]
  - LOCALISED INFECTION [None]
  - PLATELET COUNT DECREASED [None]
  - HYPERSENSITIVITY [None]
